FAERS Safety Report 18306510 (Version 1)
Quarter: 2020Q3

REPORT INFORMATION
  Report Type: Spontaneous
  Country: US (occurrence: US)
  Receive Date: 20200923
  Receipt Date: 20200923
  Transmission Date: 20201103
  Serious: Yes (Life-Threatening, Hospitalization)
  Sender: FDA-Public Use
  Company Number: None

PATIENT
  Age: 77 Year
  Sex: Male
  Weight: 58 kg

DRUGS (1)
  1. APIXABAN (APIXABAN 5MG TAB) [Suspect]
     Active Substance: APIXABAN
     Indication: ATRIAL FIBRILLATION
     Route: 048
     Dates: start: 20200728

REACTIONS (6)
  - Rectal haemorrhage [None]
  - Iron deficiency anaemia [None]
  - Acute kidney injury [None]
  - Gastrointestinal haemorrhage [None]
  - Abdominal pain [None]
  - Hypotension [None]

NARRATIVE: CASE EVENT DATE: 20200826
